FAERS Safety Report 6401663-1 (Version None)
Quarter: 2009Q4

REPORT INFORMATION
  Report Type: 
  Country: None (occurrence: None)
  Receive Date: 20091015
  Receipt Date: 20091005
  Transmission Date: 20100525
  Serious: Yes (Hospitalization)
  Sender: FDA-Public Use
  Company Number: US-ELI_LILLY_AND_COMPANY-US200910000901

PATIENT
  Sex: Female

DRUGS (2)
  1. FORTEO [Suspect]
     Indication: OSTEOPOROSIS
     Dosage: 20 UG, DAILY (1/D)
     Dates: start: 20090601
  2. ASPIRIN [Concomitant]
     Dosage: UNK, DAILY (1/D)

REACTIONS (3)
  - FALL [None]
  - LOWER LIMB FRACTURE [None]
  - WEIGHT BEARING DIFFICULTY [None]
